FAERS Safety Report 7991434-7 (Version None)
Quarter: 2011Q4

REPORT INFORMATION
  Report Type: 
  Country: None (occurrence: None)
  Receive Date: 20111219
  Receipt Date: 20111210
  Transmission Date: 20120403
  Serious: Yes (Other)
  Sender: FDA-Public Use
  Company Number: US-JNJFOC-20111205917

PATIENT
  Sex: Male
  Weight: 74.84 kg

DRUGS (2)
  1. MINOXIDIL [Suspect]
     Indication: HAIR GROWTH ABNORMAL
     Route: 061
     Dates: start: 20111205, end: 20111205
  2. MINOXIDIL [Suspect]
     Dosage: HALF CAPFUL
     Route: 061
     Dates: start: 20111204, end: 20111204

REACTIONS (10)
  - SWELLING FACE [None]
  - TENDERNESS [None]
  - EYE PRURITUS [None]
  - APPLICATION SITE WARMTH [None]
  - DRY EYE [None]
  - APPLICATION SITE PRURITUS [None]
  - SKIN DISORDER [None]
  - SCAB [None]
  - APPLICATION SITE INFLAMMATION [None]
  - APPLICATION SITE EXFOLIATION [None]
